FAERS Safety Report 5592414-1 (Version None)
Quarter: 2007Q4

REPORT INFORMATION
  Report Type: 
  Country: None (occurrence: None)
  Receive Date: 20071217
  Receipt Date: 20070924
  Transmission Date: 20080405
  Serious: No
  Sender: FDA-Public Use
  Company Number: BDI-010189

PATIENT
  Sex: Female

DRUGS (1)
  1. MULTIHANCE [Suspect]
     Indication: NUCLEAR MAGNETIC RESONANCE IMAGING
     Dosage: IV
     Route: 042
     Dates: start: 20070802, end: 20070802

REACTIONS (5)
  - APPLICATION SITE PRURITUS [None]
  - CHEST DISCOMFORT [None]
  - HYPERTENSION [None]
  - NAUSEA [None]
  - TREMOR [None]
